FAERS Safety Report 15260145 (Version 2)
Quarter: 2020Q4

REPORT INFORMATION
  Report Type: Spontaneous
  Country: US (occurrence: US)
  Receive Date: 20180809
  Receipt Date: 20201221
  Transmission Date: 20210113
  Serious: Yes (Other)
  Sender: FDA-Public Use
  Company Number: US-SA-2018SA209960

PATIENT

DRUGS (1)
  1. DUPIXENT [Suspect]
     Active Substance: DUPILUMAB
     Indication: DERMATITIS ATOPIC
     Dosage: 300 MG, QOW
     Route: 058
     Dates: start: 20170501

REACTIONS (4)
  - Cataract [Unknown]
  - Ocular hyperaemia [Recovering/Resolving]
  - Conjunctivitis [Unknown]
  - Visual impairment [Unknown]
